FAERS Safety Report 6741153-X (Version None)
Quarter: 2010Q2

REPORT INFORMATION
  Report Type: 
  Country: None (occurrence: None)
  Receive Date: 20100526
  Receipt Date: 20100517
  Transmission Date: 20101027
  Serious: Yes (Hospitalization)
  Sender: FDA-Public Use
  Company Number: FR-ASTRAZENECA-2010SE23090

PATIENT
  Age: 22750 Day
  Sex: Male

DRUGS (6)
  1. TENORETIC 100 [Suspect]
     Route: 048
     Dates: start: 20091201, end: 20100223
  2. FORTZAAR [Suspect]
     Route: 048
     Dates: start: 20091103, end: 20100223
  3. MODAMIDE [Suspect]
     Route: 048
     Dates: start: 20091103, end: 20100223
  4. LANSOPRAZOLE [Concomitant]
     Dates: start: 20091103
  5. CRESTOR [Concomitant]
     Route: 048
     Dates: start: 20091201
  6. LIPANTHYL [Concomitant]
     Dates: start: 20091103, end: 20091201

REACTIONS (3)
  - DEHYDRATION [None]
  - PANCREATITIS ACUTE [None]
  - RENAL FAILURE ACUTE [None]
